FAERS Safety Report 22715057 (Version 3)
Quarter: 2023Q4

REPORT INFORMATION
  Report Type: Spontaneous
  Country: DE (occurrence: DE)
  Receive Date: 20230718
  Receipt Date: 20231128
  Transmission Date: 20240109
  Serious: Yes (Hospitalization, Disabling)
  Sender: FDA-Public Use
  Company Number: DE-DCGMA-23201509

PATIENT
  Age: 70 Year
  Sex: Male
  Weight: 66 kg

DRUGS (7)
  1. EMPAGLIFLOZIN [Suspect]
     Active Substance: EMPAGLIFLOZIN
     Indication: Type 2 diabetes mellitus
     Route: 048
     Dates: start: 201912, end: 202303
  2. BISOPROLOL [Concomitant]
     Active Substance: BISOPROLOL\BISOPROLOL FUMARATE
     Indication: Product used for unknown indication
     Dosage: 1
  3. RAMIPRIL [Concomitant]
     Active Substance: RAMIPRIL
     Indication: Product used for unknown indication
     Dosage: 1
  4. JANUMET [Concomitant]
     Active Substance: METFORMIN HYDROCHLORIDE\SITAGLIPTIN PHOSPHATE
     Indication: Product used for unknown indication
     Dosage: 50/1000?1X1 DAILY
  5. ASPIRIN [Concomitant]
     Active Substance: ASPIRIN
     Indication: Product used for unknown indication
     Dosage: 1X1
  6. Trulicity 3.0 [Concomitant]
     Indication: Product used for unknown indication
     Dosage: 1X
     Route: 058
  7. SIMVASTATIN [Concomitant]
     Active Substance: SIMVASTATIN
     Indication: Product used for unknown indication
     Dosage: 1

REACTIONS (8)
  - Scrotal abscess [Recovered/Resolved]
  - Epididymitis [Recovered/Resolved]
  - Orchitis [Unknown]
  - Cellulitis [Unknown]
  - Allergy to arthropod bite [Unknown]
  - Urogenital infection bacterial [Unknown]
  - Renal disorder [Unknown]
  - Cyst [Unknown]

NARRATIVE: CASE EVENT DATE: 20220601
